FAERS Safety Report 16901348 (Version 1)
Quarter: 2019Q4

REPORT INFORMATION
  Report Type: Spontaneous
  Country: CN (occurrence: CN)
  Receive Date: 20191009
  Receipt Date: 20191009
  Transmission Date: 20200122
  Serious: Yes (Disabling, Other)
  Sender: FDA-Public Use
  Company Number: CN-UCBSA-2019042187

PATIENT
  Age: 55 Year
  Sex: Male
  Weight: 58 kg

DRUGS (3)
  1. KEPPRA [Suspect]
     Active Substance: LEVETIRACETAM
     Indication: EPILEPSY
     Dosage: 1 GRAM, 2X/DAY (BID)
     Route: 048
     Dates: start: 20190719, end: 20190731
  2. DEPAKINE [VALPROIC ACID] [Suspect]
     Active Substance: VALPROIC ACID
     Indication: EPILEPSY
     Dosage: 0.2 GRAM, 4X/DAY (QID)
     Route: 045
     Dates: start: 20190717, end: 20190801
  3. CORDARONE [Suspect]
     Active Substance: AMIODARONE HYDROCHLORIDE
     Indication: EPILEPSY
     Dosage: 0.2 GRAM, 3X/DAY (TID)
     Route: 045
     Dates: start: 20190716, end: 20190801

REACTIONS (1)
  - Acquired epidermolysis bullosa [Recovering/Resolving]

NARRATIVE: CASE EVENT DATE: 20190729
